FAERS Safety Report 25922290 (Version 1)
Quarter: 2025Q4

REPORT INFORMATION
  Report Type: Spontaneous
  Country: CN (occurrence: CN)
  Receive Date: 20251015
  Receipt Date: 20251015
  Transmission Date: 20260117
  Serious: Yes (Life-Threatening, Hospitalization, Other)
  Sender: NOSTRUM PHARMACEUTICALS LLC
  Company Number: CN-NP-2025-1669831-LIT-64

PATIENT
  Age: 58 Year
  Sex: Female

DRUGS (3)
  1. METFORMIN [Suspect]
     Active Substance: METFORMIN HYDROCHLORIDE
     Dosage: 15G
     Route: 065
     Dates: end: 20220628
  2. RESERPINE [Interacting]
     Active Substance: RESERPINE
     Dosage: 25 MG
     Route: 065
     Dates: end: 20220628
  3. ENALAPRIL [Interacting]
     Active Substance: ENALAPRIL
     Dosage: 80 MG
     Route: 065
     Dates: end: 20220628

REACTIONS (22)
  - Overdose [Recovered/Resolved]
  - Drug interaction [Recovered/Resolved]
  - Shock [Recovered/Resolved]
  - Metabolic acidosis [Recovered/Resolved]
  - Lactic acidosis [Recovered/Resolved]
  - Hypoglycaemia [Recovered/Resolved]
  - Toxic encephalopathy [Recovered/Resolved]
  - Hypoxic-ischaemic encephalopathy [Recovered/Resolved]
  - Coma [Recovered/Resolved]
  - Acute kidney injury [Recovered/Resolved]
  - Hypothermia [Recovered/Resolved]
  - Disseminated intravascular coagulation [Recovered/Resolved]
  - Gastrointestinal haemorrhage [Recovered/Resolved]
  - Respiratory tract haemorrhage [Recovered/Resolved]
  - Respiratory failure [Recovered/Resolved]
  - Pulmonary oedema [Recovered/Resolved]
  - Ileus paralytic [Recovered/Resolved]
  - Capillary leak syndrome [Recovered/Resolved]
  - Abdominal compartment syndrome [Recovered/Resolved]
  - Myocardial injury [Recovered/Resolved]
  - Multiple organ dysfunction syndrome [Recovered/Resolved]
  - Toxicity to various agents [Recovered/Resolved]
